FAERS Safety Report 14934910 (Version 1)
Quarter: 2018Q2

REPORT INFORMATION
  Report Type: Other
  Country: None (occurrence: BF)
  Receive Date: 20180524
  Receipt Date: 20180524
  Transmission Date: 20180711
  Serious: Yes (Other)
  Sender: FDA-Public Use
  Company Number: BF-POPULATION COUNCIL, INC.-2048407

PATIENT
  Age: 40 Year
  Sex: Female
  Weight: 53 kg

DRUGS (1)
  1. JADELLE [Suspect]
     Active Substance: LEVONORGESTREL
     Indication: CONTRACEPTION
     Route: 059
     Dates: start: 20151025, end: 20180305

REACTIONS (3)
  - Drug ineffective [None]
  - Labelled drug-drug interaction medication error [None]
  - Pregnancy with implant contraceptive [None]
